FAERS Safety Report 14154961 (Version 3)
Quarter: 2017Q4

REPORT INFORMATION
  Report Type: Spontaneous
  Country: JP (occurrence: JP)
  Receive Date: 20171102
  Receipt Date: 20171228
  Transmission Date: 20180321
  Serious: Yes (Other)
  Sender: FDA-Public Use
  Company Number: PHJP2017JP032112

PATIENT
  Age: 74 Year
  Sex: Male

DRUGS (6)
  1. EXFORGE [Suspect]
     Active Substance: AMLODIPINE BESYLATE\VALSARTAN
     Indication: INTERSTITIAL LUNG DISEASE
     Dosage: 1DF: VALSARTAN 80MG AND AMLODIPINE BESYLATE 5MG, QD
     Route: 048
  2. PRED [Concomitant]
     Active Substance: PREDNISONE
     Indication: PRODUCT USED FOR UNKNOWN INDICATION
     Dosage: 15 MG, UNK
     Route: 065
  3. EXFORGE [Interacting]
     Active Substance: AMLODIPINE BESYLATE\VALSARTAN
     Indication: BLOOD PRESSURE INCREASED
     Dosage: UNK
     Route: 048
  4. BACTRAMIN [Interacting]
     Active Substance: SULFAMETHOXAZOLE\TRIMETHOPRIM
     Indication: PRODUCT USED FOR UNKNOWN INDICATION
     Dosage: 9 DF, UNK
     Route: 065
  5. BACTRAMIN [Interacting]
     Active Substance: SULFAMETHOXAZOLE\TRIMETHOPRIM
     Dosage: 4.5 G, UNK
     Route: 065
  6. PRED [Concomitant]
     Active Substance: PREDNISONE
     Dosage: 50 MG, UNK
     Route: 042

REACTIONS (7)
  - Electrocardiogram T wave abnormal [Unknown]
  - Renal impairment [Unknown]
  - Drug interaction [Unknown]
  - Electrocardiogram QRS complex prolonged [Unknown]
  - Respiratory failure [Unknown]
  - Blood pressure increased [Unknown]
  - Hyperkalaemia [Unknown]
